FAERS Safety Report 18106007 (Version 1)
Quarter: 2020Q3

REPORT INFORMATION
  Report Type: Spontaneous
  Country: US (occurrence: US)
  Receive Date: 20200804
  Receipt Date: 20200804
  Transmission Date: 20201103
  Serious: No
  Sender: FDA-Public Use
  Company Number: US-DRREDDYS-USA/USA/20/0125390

PATIENT
  Age: 79 Year
  Sex: Female

DRUGS (2)
  1. LANSOPRAZOLE DELAYED?RELEASE CAPSULES [Suspect]
     Active Substance: LANSOPRAZOLE
     Indication: DYSPEPSIA
     Route: 048
  2. LANSOPRAZOLE DELAYED?RELEASE CAPSULES [Suspect]
     Active Substance: LANSOPRAZOLE
     Indication: NAUSEA

REACTIONS (1)
  - Product use in unapproved indication [Unknown]
